FAERS Safety Report 6544503-2 (Version None)
Quarter: 2010Q1

REPORT INFORMATION
  Report Type: 
  Country: None (occurrence: None)
  Receive Date: 20100121
  Receipt Date: 20100113
  Transmission Date: 20100710
  Serious: Yes (Other)
  Sender: FDA-Public Use
  Company Number: JP-ROCHE-680236

PATIENT
  Age: 2 Year
  Sex: Female

DRUGS (6)
  1. CELLCEPT [Suspect]
     Indication: RENAL TRANSPLANT
     Route: 048
  2. TACROLIMUS HYDRATE [Concomitant]
     Route: 048
  3. BASILIXIMAB [Concomitant]
     Route: 048
  4. METHYLPREDNISOLONE [Concomitant]
     Route: 048
  5. ANTIEPILEPTIC [Concomitant]
     Route: 048
  6. ANTICOAGULANT [Concomitant]
     Route: 048

REACTIONS (7)
  - DEHYDRATION [None]
  - DIARRHOEA [None]
  - EPSTEIN-BARR VIRAEMIA [None]
  - HYPERKALAEMIA [None]
  - HYPERURICAEMIA [None]
  - RENAL VEIN THROMBOSIS [None]
  - VENA CAVA THROMBOSIS [None]
